FAERS Safety Report 16905579 (Version 1)
Quarter: 2019Q4

REPORT INFORMATION
  Report Type: Other
  Country: US (occurrence: US)
  Receive Date: 20191010
  Receipt Date: 20191010
  Transmission Date: 20200122
  Serious: No
  Sender: FDA-Public Use
  Company Number: US-AMAG PHARMACEUTICALS, INC.-AMAG201905124

PATIENT
  Sex: Female

DRUGS (1)
  1. MAKENA [Suspect]
     Active Substance: HYDROXYPROGESTERONE CAPROATE
     Indication: PREMATURE DELIVERY
     Route: 030
     Dates: start: 201809

REACTIONS (7)
  - Injection site pain [Unknown]
  - Injection site swelling [Unknown]
  - Shortened cervix [Unknown]
  - Injection site pruritus [Unknown]
  - Anxiety [Unknown]
  - Injection site discomfort [Unknown]
  - Uterine contractions during pregnancy [Unknown]
